FAERS Safety Report 5869631-6 (Version None)
Quarter: 2008Q3

REPORT INFORMATION
  Report Type: 
  Country: None (occurrence: None)
  Receive Date: 20080904
  Receipt Date: 20080713
  Transmission Date: 20090109
  Serious: No
  Sender: FDA-Public Use
  Company Number: US-KINGPHARMUSA00001-K200800821

PATIENT

DRUGS (2)
  1. CYTOMEL [Suspect]
     Route: 048
  2. LEVOXYL [Suspect]
     Route: 048

REACTIONS (4)
  - COUGH [None]
  - PRURITUS [None]
  - RHINORRHOEA [None]
  - UNEVALUABLE EVENT [None]
